FAERS Safety Report 12768916 (Version 1)
Quarter: 2016Q3

REPORT INFORMATION
  Report Type: Spontaneous
  Country: US (occurrence: US)
  Receive Date: 20160921
  Receipt Date: 20160921
  Transmission Date: 20161109
  Serious: No
  Sender: FDA-Public Use
  Company Number: US-JAZZ-2016-US-010446

PATIENT
  Age: 48 Year
  Sex: Female

DRUGS (26)
  1. CELEBREX [Concomitant]
     Active Substance: CELECOXIB
  2. LORAZEPAM. [Concomitant]
     Active Substance: LORAZEPAM
  3. IBUPROFEN. [Suspect]
     Active Substance: IBUPROFEN
     Dosage: UNKNOWN
     Dates: start: 20160111, end: 20160531
  4. PREDNISONE. [Concomitant]
     Active Substance: PREDNISONE
  5. TRAZODONE [Concomitant]
     Active Substance: TRAZODONE HYDROCHLORIDE
  6. SYMBICORT [Suspect]
     Active Substance: BUDESONIDE\FORMOTEROL FUMARATE DIHYDRATE
     Dosage: UNKNOWN DOSE
     Dates: start: 20151019, end: 20160229
  7. LISINOPRIL/HCTZ [Concomitant]
     Active Substance: HYDROCHLOROTHIAZIDE\LISINOPRIL
  8. SERTRALINE HCL [Concomitant]
     Active Substance: SERTRALINE HYDROCHLORIDE
  9. VENTOLIN HFA [Concomitant]
     Active Substance: ALBUTEROL SULFATE
  10. LEXAPRO [Concomitant]
     Active Substance: ESCITALOPRAM OXALATE
  11. XYREM [Suspect]
     Active Substance: SODIUM OXYBATE
     Dosage: DOSE ADJUSTMENTS
     Route: 048
     Dates: start: 2006, end: 2006
  12. METOPROLOL SUCCINATE ER [Concomitant]
     Active Substance: METOPROLOL SUCCINATE
  13. AMBIEN CR [Concomitant]
     Active Substance: ZOLPIDEM TARTRATE
  14. XYREM [Suspect]
     Active Substance: SODIUM OXYBATE
     Dosage: 4.5 G, BID
     Route: 048
     Dates: start: 200611, end: 2016
  15. CYMBALTA [Concomitant]
     Active Substance: DULOXETINE HYDROCHLORIDE
  16. PERCOCET [Concomitant]
     Active Substance: ACETAMINOPHEN\OXYCODONE HYDROCHLORIDE
  17. FERROUS SULFATE. [Concomitant]
     Active Substance: FERROUS SULFATE
  18. ZYRTEC [Concomitant]
     Active Substance: CETIRIZINE HYDROCHLORIDE
  19. REMERON [Concomitant]
     Active Substance: MIRTAZAPINE
  20. ZOLOFT [Concomitant]
     Active Substance: SERTRALINE HYDROCHLORIDE
  21. XYREM [Suspect]
     Active Substance: SODIUM OXYBATE
     Indication: FIBROMYALGIA
     Dosage: 2.25 G, BID
     Route: 048
     Dates: start: 200604, end: 200605
  22. TYLENOL EXTRA STRENGTH [Concomitant]
     Active Substance: ACETAMINOPHEN
  23. XANAX [Concomitant]
     Active Substance: ALPRAZOLAM
  24. OXYCODONE HCL IR [Concomitant]
  25. CLARITIN [Concomitant]
     Active Substance: LORATADINE
  26. PRILOSEC [Concomitant]
     Active Substance: OMEPRAZOLE MAGNESIUM

REACTIONS (7)
  - Insomnia [Recovering/Resolving]
  - Anxiety [Recovering/Resolving]
  - Intervertebral disc disorder [Unknown]
  - Drug ineffective [Unknown]
  - Limb injury [Unknown]
  - Blood pressure increased [Recovering/Resolving]
  - Back injury [Unknown]

NARRATIVE: CASE EVENT DATE: 2015
